FAERS Safety Report 4764204-0 (Version None)
Quarter: 2005Q3

REPORT INFORMATION
  Report Type: 
  Country: None (occurrence: None)
  Receive Date: 20050906
  Receipt Date: 20050613
  Transmission Date: 20060218
  Serious: No
  Sender: FDA-Public Use
  Company Number: 2005-BP-10000BP

PATIENT
  Age: 81 Year
  Sex: Female

DRUGS (7)
  1. SPIRIVA [Suspect]
     Indication: CHRONIC OBSTRUCTIVE PULMONARY DISEASE
     Dosage: 18 MCG (18 MCG), IH
     Route: 055
     Dates: start: 20050401
  2. NORVASC [Concomitant]
  3. DIAZIDE (GLICLAZIDE) [Concomitant]
  4. LEVOXYL [Concomitant]
  5. K [Concomitant]
  6. ACETYLSALICYLIC ACID SRT [Concomitant]
  7. NAPROSYN [Concomitant]

REACTIONS (2)
  - DRY MOUTH [None]
  - DYSPHONIA [None]
